FAERS Safety Report 24463300 (Version 1)
Quarter: 2024Q4

REPORT INFORMATION
  Report Type: Report from Study
  Country: US (occurrence: US)
  Receive Date: 20241018
  Receipt Date: 20241018
  Transmission Date: 20250115
  Serious: No
  Sender: ROCHE
  Company Number: US-ROCHE-3295495

PATIENT
  Age: 49 Year
  Sex: Male

DRUGS (10)
  1. XOLAIR [Suspect]
     Active Substance: OMALIZUMAB
     Indication: Idiopathic urticaria
     Dosage: STRENGTH: 150 MG/ML
     Route: 058
  2. XOLAIR [Suspect]
     Active Substance: OMALIZUMAB
     Indication: Urticaria
     Route: 058
  3. XOLAIR [Suspect]
     Active Substance: OMALIZUMAB
     Route: 058
     Dates: start: 20230217, end: 20230504
  4. XOLAIR [Suspect]
     Active Substance: OMALIZUMAB
     Route: 058
  5. NORVASC [Concomitant]
     Active Substance: AMLODIPINE BESYLATE
     Route: 048
     Dates: start: 20230119, end: 20230427
  6. LASIX [Concomitant]
     Active Substance: FUROSEMIDE
     Dosage: 1.5 TAB
     Route: 048
     Dates: start: 20230209
  7. MOTRIN [Concomitant]
     Active Substance: IBUPROFEN
     Route: 048
  8. COZAAR [Concomitant]
     Active Substance: LOSARTAN POTASSIUM
     Route: 048
     Dates: start: 20230119, end: 20230427
  9. GLUCOPHAGE [Concomitant]
     Active Substance: METFORMIN HYDROCHLORIDE
     Route: 048
  10. PREDNISONE [Concomitant]
     Active Substance: PREDNISONE
     Route: 048
     Dates: start: 20230223, end: 20230316

REACTIONS (3)
  - Product prescribing error [Unknown]
  - No adverse event [Unknown]
  - Off label use [Unknown]
